FAERS Safety Report 20087179 (Version 1)
Quarter: 2021Q4

REPORT INFORMATION
  Report Type: Spontaneous
  Country: DE (occurrence: DE)
  Receive Date: 20211118
  Receipt Date: 20211118
  Transmission Date: 20220304
  Serious: Yes (Hospitalization)
  Sender: FDA-Public Use
  Company Number: DE-ADRED-07244-01

PATIENT
  Age: 86 Year
  Sex: Male
  Weight: 77 kg

DRUGS (5)
  1. CANDESARTAN CILEXETIL\HYDROCHLOROTHIAZIDE [Suspect]
     Active Substance: CANDESARTAN CILEXETIL\HYDROCHLOROTHIAZIDE
     Indication: Product used for unknown indication
     Dosage: 8|12.5 MG, 1-0-0-0, TABLETTEN
     Route: 048
  2. BUSERELIN [Suspect]
     Active Substance: BUSERELIN
     Indication: Product used for unknown indication
     Dosage: IMPLANTAT
     Route: 058
  3. METHOTREXATE SODIUM [Suspect]
     Active Substance: METHOTREXATE SODIUM
     Indication: Product used for unknown indication
     Dosage: 7.5 MG, ALLE SIEBEN TAGE, TABLETTEN
     Route: 048
  4. NEBIVOLOL [Concomitant]
     Active Substance: NEBIVOLOL
     Dosage: 5 MILLIGRAM, QD, 5 MG, 1-0-0-0, TABLETTEN
     Route: 048
  5. TAMSULOSIN [Concomitant]
     Active Substance: TAMSULOSIN
     Dosage: 0.4 MG, 1-0-0-0, RETARD-TABLETTEN
     Route: 048

REACTIONS (5)
  - Cryptorchism [Unknown]
  - Scrotal swelling [Unknown]
  - Pollakiuria [Unknown]
  - Urinary incontinence [Unknown]
  - Nocturia [Unknown]
